FAERS Safety Report 6244816-8 (Version None)
Quarter: 2009Q2

REPORT INFORMATION
  Report Type: 
  Country: None (occurrence: None)
  Receive Date: 20090623
  Receipt Date: 20090623
  Transmission Date: 20091009
  Serious: Yes (Other)
  Sender: FDA-Public Use
  Company Number: None

PATIENT
  Age: 51 Year
  Sex: Female
  Weight: 120.2032 kg

DRUGS (2)
  1. ZICAM SEASONAL ALLERGY RELIEF NON DROW [Suspect]
     Indication: BACTERIAL INFECTION
     Dosage: 1 SPRAY 4HR NASAL
     Route: 045
     Dates: start: 20090603, end: 20090608
  2. ZICAM SEASONAL ALLERGY RELIEF NON DROW [Suspect]
     Indication: VIRAL INFECTION
     Dosage: 1 SPRAY 4HR NASAL
     Route: 045
     Dates: start: 20090603, end: 20090608

REACTIONS (4)
  - AGEUSIA [None]
  - ANOSMIA [None]
  - HYPOGEUSIA [None]
  - HYPOSMIA [None]
